FAERS Safety Report 25504211 (Version 1)
Quarter: 2025Q2

REPORT INFORMATION
  Report Type: Spontaneous
  Country: US (occurrence: None)
  Receive Date: 20250630
  Receipt Date: 20250630
  Transmission Date: 20250716
  Serious: Yes (Other)
  Sender: FDA-CTU
  Company Number: None

PATIENT
  Age: 72 Year
  Sex: Female
  Weight: 75.6 kg

DRUGS (11)
  1. VOQUEZNA [Suspect]
     Active Substance: VONOPRAZAN FUMARATE
     Indication: Gastrooesophageal reflux disease
     Dosage: OTHER QUANTITY : 1 TABLET(S);?FREQUENCY : DAILY;?
     Route: 048
     Dates: start: 20250629, end: 20250630
  2. MIRTAZAPINE [Suspect]
     Active Substance: MIRTAZAPINE
     Indication: Insomnia
     Dosage: OTHER QUANTITY : 1 TABLET(S);?FREQUENCY : DAILY;?
     Route: 048
     Dates: start: 20250629, end: 20250630
  3. CYCLOBENZAPRINE [Concomitant]
     Active Substance: CYCLOBENZAPRINE
  4. clonazipam [Concomitant]
  5. auto pap [Concomitant]
  6. FIORICET [Concomitant]
     Active Substance: ACETAMINOPHEN\BUTALBITAL\CAFFEINE
  7. CALCIUM [Concomitant]
     Active Substance: CALCIUM
  8. VITAMIN D [Concomitant]
     Active Substance: VITAMIN D NOS
  9. FISH OIL [Concomitant]
     Active Substance: FISH OIL
  10. COENZYME Q10 [Concomitant]
     Active Substance: DIETARY SUPPLEMENT\UBIDECARENONE
  11. glucosamine condroitin [Concomitant]

REACTIONS (3)
  - Vomiting [None]
  - Migraine [None]
  - Dyspepsia [None]

NARRATIVE: CASE EVENT DATE: 20250629
